FAERS Safety Report 17583446 (Version 1)
Quarter: 2020Q1

REPORT INFORMATION
  Report Type: Other
  Country: GB (occurrence: GB)
  Receive Date: 20200326
  Receipt Date: 20200326
  Transmission Date: 20200409
  Serious: No
  Sender: FDA-Public Use
  Company Number: GB-LUPIN PHARMACEUTICALS INC.-2019-07264

PATIENT
  Age: 53 Year

DRUGS (1)
  1. SERTRALINE HYDROCHLORIDE TABLETS [Suspect]
     Active Substance: SERTRALINE HYDROCHLORIDE
     Indication: PRODUCT USED FOR UNKNOWN INDICATION
     Dosage: 50 MILLIGRAM, 1 ON ONSET AND 2ND TABLET AFTER 2 HOURS
     Route: 065

REACTIONS (4)
  - Dizziness [Unknown]
  - Retching [Unknown]
  - Nausea [Unknown]
  - Product dispensing error [Unknown]
